FAERS Safety Report 9775610 (Version 1)
Quarter: 2013Q4

REPORT INFORMATION
  Report Type: Spontaneous
  Country: US (occurrence: US)
  Receive Date: 20131220
  Receipt Date: 20131220
  Transmission Date: 20140711
  Serious: No
  Sender: FDA-Public Use
  Company Number: US-BAYER-2013-155710

PATIENT
  Age: 88 Year
  Sex: Female
  Weight: 57 kg

DRUGS (3)
  1. ALEVE CAPLET [Suspect]
     Indication: ARTHRITIS
     Dosage: UNK DF, OTHER
     Route: 048
  2. SIMVASTATIN [Concomitant]
  3. BAYER ASPIRIN REGIMEN ADULT LOW STRENGTH [Concomitant]

REACTIONS (2)
  - Incorrect drug administration duration [None]
  - Abdominal discomfort [None]
